FAERS Safety Report 5324520-0 (Version None)
Quarter: 2007Q2

REPORT INFORMATION
  Report Type: 
  Country: None (occurrence: None)
  Receive Date: 20070514
  Receipt Date: 20070503
  Transmission Date: 20071010
  Serious: Yes (Other)
  Sender: FDA-Public Use
  Company Number: KR-PFIZER INC-2007035992

PATIENT
  Age: 55 Year
  Sex: Male

DRUGS (5)
  1. VIAGRA [Suspect]
     Route: 048
  2. CO-DIOVAN [Concomitant]
     Route: 048
  3. ASTRIX [Concomitant]
     Route: 048
  4. NORVASC [Concomitant]
     Route: 048
  5. ANTIHYPERTENSIVES [Concomitant]
     Route: 048

REACTIONS (1)
  - HYPERSENSITIVITY [None]
